FAERS Safety Report 8239866-6 (Version None)
Quarter: 2012Q1

REPORT INFORMATION
  Report Type: 
  Country: None (occurrence: None)
  Receive Date: 20120328
  Receipt Date: 20120319
  Transmission Date: 20120608
  Serious: Yes (Life-Threatening, Other)
  Sender: FDA-Public Use
  Company Number: PHEH2012US006260

PATIENT

DRUGS (1)
  1. CLOZARIL [Suspect]
     Dosage: 100 MG, UNK

REACTIONS (3)
  - SUICIDE ATTEMPT [None]
  - SELF INJURIOUS BEHAVIOUR [None]
  - PSYCHOTIC DISORDER [None]
